FAERS Safety Report 9058512 (Version 2)
Quarter: 2013Q1

REPORT INFORMATION
  Report Type: Other
  Country: JP (occurrence: JP)
  Receive Date: 20130211
  Receipt Date: 20130308
  Transmission Date: 20140127
  Serious: Yes (Other)
  Sender: FDA-Public Use
  Company Number: JP-BRISTOL-MYERS SQUIBB COMPANY-17370172

PATIENT
  Age: 68 Year
  Sex: Male

DRUGS (4)
  1. ERBITUX SOLN FOR INF 5MG/ML [Suspect]
     Indication: COLON CANCER
     Dosage: LAST INF: 05SEP11
     Route: 041
     Dates: start: 20110627, end: 20110905
  2. DECADRON [Concomitant]
  3. POLARAMINE [Concomitant]
  4. MAGMITT [Concomitant]
     Route: 048

REACTIONS (1)
  - Cerebral haemorrhage [Not Recovered/Not Resolved]
